FAERS Safety Report 7655586-0 (Version None)
Quarter: 2011Q3

REPORT INFORMATION
  Report Type: 
  Country: None (occurrence: None)
  Receive Date: 20110804
  Receipt Date: 20110801
  Transmission Date: 20111222
  Serious: Yes (Death, Hospitalization)
  Sender: FDA-Public Use
  Company Number: PHHY2011US69573

PATIENT
  Sex: Male

DRUGS (1)
  1. EXJADE [Suspect]
     Indication: TRANSFUSION
     Dosage: 1500 MG, UNK
     Route: 048
     Dates: start: 20080901, end: 20081201

REACTIONS (2)
  - DEATH [None]
  - CELLULITIS [None]
